FAERS Safety Report 11341894 (Version 2)
Quarter: 2015Q3

REPORT INFORMATION
  Report Type: Other
  Country: None (occurrence: FI)
  Receive Date: 20150805
  Receipt Date: 20150909
  Transmission Date: 20151125
  Serious: Yes (Other)
  Sender: FDA-Public Use
  Company Number: FI-MERCK KGAA-1040934

PATIENT

DRUGS (1)
  1. NOVOTHYROX [Suspect]
     Active Substance: LEVOTHYROXINE SODIUM

REACTIONS (8)
  - Epilepsy [None]
  - Spinal disorder [None]
  - Alopecia [None]
  - Weight decreased [None]
  - Hyperthyroidism [None]
  - Pain [None]
  - Drug interaction [None]
  - Asthenia [None]
